FAERS Safety Report 6446909-9 (Version None)
Quarter: 2009Q4

REPORT INFORMATION
  Report Type: 
  Country: None (occurrence: None)
  Receive Date: 20091110
  Receipt Date: 20090902
  Transmission Date: 20100525
  Serious: Yes (Other)
  Sender: FDA-Public Use
  Company Number: 1000008642

PATIENT
  Sex: Female

DRUGS (4)
  1. SAVELLA [Suspect]
     Dosage: 12.5 MG (12.5 MG, 1 IN 1 D), OTHER;  25 MG (12.5 MG,2 IN 1 D),ORAL
     Route: 050
  2. SAVELLA [Suspect]
     Dosage: 50 MG (25 MG,2 IN 1 D),ORAL
     Route: 048
  3. MS CONTIN [Concomitant]
  4. NEURONTIN [Concomitant]

REACTIONS (5)
  - DIARRHOEA [None]
  - DIZZINESS [None]
  - LOSS OF CONSCIOUSNESS [None]
  - NAUSEA [None]
  - TINNITUS [None]
